FAERS Safety Report 9158044 (Version 1)
Quarter: 2013Q1

REPORT INFORMATION
  Report Type: Spontaneous
  Country: DE (occurrence: None)
  Receive Date: 20130213
  Receipt Date: 20130213
  Transmission Date: 20140127
  Serious: Yes (Death)
  Sender: FDA-Public Use
  Company Number: 1595680

PATIENT
  Age: 68 Year
  Sex: Male
  Weight: 102 kg

DRUGS (1)
  1. OXALIPLATIN [Suspect]
     Indication: COLON CANCER
     Route: 041
     Dates: start: 20120730, end: 20120730

REACTIONS (7)
  - Cardiac arrest [None]
  - Hypokalaemia [None]
  - Liver function test abnormal [None]
  - Laboratory test abnormal [None]
  - Septic shock [None]
  - Colon cancer [None]
  - Disease complication [None]
